FAERS Safety Report 18338968 (Version 1)
Quarter: 2020Q3

REPORT INFORMATION
  Report Type: Spontaneous
  Country: US (occurrence: US)
  Receive Date: 20200925
  Receipt Date: 20200925
  Transmission Date: 20201103
  Serious: No
  Sender: FDA-Public Use
  Company Number: None

PATIENT
  Age: 7 Decade
  Sex: Male

DRUGS (3)
  1. LIANHUAQINGWEN [Suspect]
     Active Substance: HERBALS
     Indication: COVID-19
     Dates: start: 2020
  2. CEFIXIME. [Suspect]
     Active Substance: CEFIXIME
     Indication: COVID-19
     Dates: start: 2020
  3. OSELTAMIVIR [Suspect]
     Active Substance: OSELTAMIVIR
     Indication: COVID-19
     Dates: start: 2020

REACTIONS (2)
  - Off label use [None]
  - Emphysema [None]
